FAERS Safety Report 21043228 (Version 2)
Quarter: 2022Q4

REPORT INFORMATION
  Report Type: Other
  Country: US (occurrence: None)
  Receive Date: 20220705
  Receipt Date: 20221007
  Transmission Date: 20230113
  Serious: Yes (Other)
  Sender: FDA-Public Use
  Company Number: US-ROCHE-3127253

PATIENT
  Age: 75 Year
  Sex: Female

DRUGS (2)
  1. OCREVUS [Suspect]
     Active Substance: OCRELIZUMAB
     Indication: Primary progressive multiple sclerosis
     Dosage: LAST DOSE OF TREATMENT: 15/SEP/2021 (PRESCRIBED: INFUSE 600 MG EVERY 24 WEEKS)
     Route: 042
  2. OCREVUS [Suspect]
     Active Substance: OCRELIZUMAB
     Route: 042
     Dates: start: 20211129, end: 202206

REACTIONS (2)
  - Pneumonia [Recovered/Resolved]
  - Lymphodepletion [Unknown]

NARRATIVE: CASE EVENT DATE: 20220601
